FAERS Safety Report 25223102 (Version 1)
Quarter: 2025Q2

REPORT INFORMATION
  Report Type: Spontaneous
  Country: ES (occurrence: ES)
  Receive Date: 20250422
  Receipt Date: 20250422
  Transmission Date: 20250716
  Serious: Yes (Hospitalization)
  Sender: FRESENIUS KABI
  Company Number: None

PATIENT
  Age: 87 Year
  Sex: Male

DRUGS (12)
  1. FUROSEMIDE [Suspect]
     Active Substance: FUROSEMIDE
     Indication: Cardiac failure
     Route: 042
     Dates: start: 20240115, end: 20240126
  2. SPIRONOLACTONE [Suspect]
     Active Substance: SPIRONOLACTONE
     Indication: Cardiac failure
     Route: 048
     Dates: start: 20240117, end: 20240126
  3. SULFAMETHOXAZOLE\TRIMETHOPRIM [Suspect]
     Active Substance: SULFAMETHOXAZOLE\TRIMETHOPRIM
     Indication: Wound infection staphylococcal
     Route: 048
     Dates: start: 20240122, end: 20240126
  4. CITALOPRAM [Concomitant]
     Active Substance: CITALOPRAM
     Indication: Depression
     Route: 048
     Dates: start: 20101207, end: 20240119
  5. EFFERALGAN 500 MG hard capsules, 24 capsules [Concomitant]
     Indication: Arthralgia
     Route: 048
     Dates: start: 20190404
  6. HIDROFEROL 0.266 MG soft capsules ,10 capsules (Blister PVC/PVDC-ALUMI [Concomitant]
     Indication: Vitamin D decreased
     Route: 048
     Dates: start: 20230113
  7. TARDYFERON 80 mg coated tablets, 30 tablets [Concomitant]
     Indication: Iron deficiency anaemia
     Route: 048
     Dates: start: 20210701
  8. PERMIXON 160 mg hard capsules, 60 capsules [Concomitant]
     Indication: Benign prostatic hyperplasia
     Route: 048
     Dates: start: 20111026
  9. MOMETASONE FUROATE CIPLA 50 MICROGRAMS/SPRAY SUSPENSION FOR NASAL SPRA [Concomitant]
     Indication: Oral candidiasis
     Route: 045
     Dates: start: 20220503
  10. PANTOPRAZOLE CINFA 40 mg GASTRORRESISTANT TABLETS EFG,56 tablets (blis [Concomitant]
     Indication: Atrial fibrillation
     Route: 048
     Dates: start: 20101208
  11. CAFINITRINA 1 MG/25 MG SUBLINGUAL TABLETS, 20 TABLETS [Concomitant]
     Indication: Acute myocardial infarction
     Route: 060
     Dates: start: 20130222
  12. LORAZEPAM CINFA 1 mg tablets EFG, 50 tablets [Concomitant]
     Indication: Anxiety
     Route: 048
     Dates: start: 20101207

REACTIONS (1)
  - Chronic kidney disease [Recovered/Resolved]

NARRATIVE: CASE EVENT DATE: 20240125
